FAERS Safety Report 24241694 (Version 3)
Quarter: 2025Q3

REPORT INFORMATION
  Report Type: Spontaneous
  Country: US (occurrence: US)
  Receive Date: 20240823
  Receipt Date: 20250902
  Transmission Date: 20251021
  Serious: Yes (Disabling, Other)
  Sender: AMGEN
  Company Number: US-AMGEN-USASP2024166010

PATIENT
  Age: 56 Year
  Sex: Female

DRUGS (34)
  1. TEPEZZA [Suspect]
     Active Substance: TEPROTUMUMAB-TRBW
     Indication: Graves^ disease
     Dosage: 10 MILLIGRAM/KILOGRAM, Q3WK, 770 MILLIGRAM, (FIRST INFUSION)
     Route: 042
     Dates: start: 20220525
  2. TEPEZZA [Suspect]
     Active Substance: TEPROTUMUMAB-TRBW
     Indication: Endocrine ophthalmopathy
     Dosage: 20 MILLIGRAM/KILOGRAM, Q3WK,  1500 MILLIGRAM (SECOND INFUSION)
     Route: 042
     Dates: start: 20220615
  3. TEPEZZA [Suspect]
     Active Substance: TEPROTUMUMAB-TRBW
     Dosage: 20 MILLIGRAM/KILOGRAM, Q3WK, 1500 MILLIGRAM (THIRD INFUSION)
     Route: 042
     Dates: start: 20220706
  4. TEPEZZA [Suspect]
     Active Substance: TEPROTUMUMAB-TRBW
     Dosage: 20 MILLIGRAM/KILOGRAM, Q3WK, 1500 MILLIGRAM (FOURTH INFUSION)
     Route: 042
     Dates: start: 20220727
  5. TEPEZZA [Suspect]
     Active Substance: TEPROTUMUMAB-TRBW
     Dosage: 20 MILLIGRAM/KILOGRAM, Q3WK, 1500 MILLIGRAM (FIFTH INFUSION)
     Route: 042
     Dates: start: 20220817
  6. TEPEZZA [Suspect]
     Active Substance: TEPROTUMUMAB-TRBW
     Dosage: 20 MILLIGRAM/KILOGRAM, Q3WK, 1500 MILLIGRAM (SIXTH INFUSION)
     Route: 042
     Dates: start: 20220907
  7. TEPEZZA [Suspect]
     Active Substance: TEPROTUMUMAB-TRBW
     Dosage: 20 MILLIGRAM/KILOGRAM, Q3WK, 1500 MILLIGRAM (SEVENTH INFUSION)
     Route: 042
     Dates: start: 20220928
  8. TEPEZZA [Suspect]
     Active Substance: TEPROTUMUMAB-TRBW
     Dosage: 20 MILLIGRAM/KILOGRAM, Q3WK, 1500 MILLIGRAM (EIGHT INFUSION)
     Route: 042
     Dates: start: 20221109
  9. PREDNISONE [Suspect]
     Active Substance: PREDNISONE
     Indication: Endocrine ophthalmopathy
     Route: 048
     Dates: start: 20220409
  10. PREDNISONE [Suspect]
     Active Substance: PREDNISONE
     Route: 048
     Dates: start: 20220417
  11. PREDNISONE [Suspect]
     Active Substance: PREDNISONE
     Dosage: 10 MILLIGRAM, QD
     Route: 048
     Dates: start: 20220420, end: 20220511
  12. PREDNISONE [Suspect]
     Active Substance: PREDNISONE
     Route: 048
     Dates: start: 20220518
  13. ATENOLOL [Concomitant]
     Active Substance: ATENOLOL
     Indication: Tachycardia
     Route: 065
  14. ATOMOXETINE [Concomitant]
     Active Substance: ATOMOXETINE
     Route: 065
  15. CELECOXIB [Concomitant]
     Active Substance: CELECOXIB
     Route: 065
  16. METHIMAZOLE [Concomitant]
     Active Substance: METHIMAZOLE
     Indication: Hyperthyroidism
     Route: 065
     Dates: start: 202110
  17. XIIDRA [Concomitant]
     Active Substance: LIFITEGRAST
     Indication: Dry eye
     Dosage: UNK UNK, BID
     Route: 065
  18. MONTELUKAST [Concomitant]
     Active Substance: MONTELUKAST
     Indication: Asthma
     Route: 065
  19. SYSTANE (HYPROMELLOSE 2910 (4000 MPA.S)) [Concomitant]
     Active Substance: HYPROMELLOSE 2910 (4000 MPA.S)
     Indication: Dry eye
     Route: 065
  20. NICOTINE [Concomitant]
     Active Substance: NICOTINE
     Route: 065
  21. PREGABALIN [Concomitant]
     Active Substance: PREGABALIN
     Route: 065
  22. ROSUVASTATIN [Concomitant]
     Active Substance: ROSUVASTATIN
     Route: 065
  23. TRIAMCINOLONE ACETONIDE [Concomitant]
     Active Substance: TRIAMCINOLONE ACETONIDE
     Route: 065
  24. CRESTOR [Concomitant]
     Active Substance: ROSUVASTATIN CALCIUM
     Route: 065
  25. VITAMIN D3 [Concomitant]
     Active Substance: CHOLECALCIFEROL
     Route: 065
  26. BIOTIN [Concomitant]
     Active Substance: BIOTIN
     Route: 065
  27. BUPROPION [Concomitant]
     Active Substance: BUPROPION
     Route: 065
  28. LYRICA [Concomitant]
     Active Substance: PREGABALIN
     Route: 065
  29. CLONAZEPAM [Concomitant]
     Active Substance: CLONAZEPAM
     Route: 065
  30. NURTEC ODT [Concomitant]
     Active Substance: RIMEGEPANT SULFATE
     Route: 065
  31. VITAMIN B12 [Concomitant]
     Active Substance: CYANOCOBALAMIN
     Route: 065
  32. SODIUM CHLORIDE [Concomitant]
     Active Substance: SODIUM CHLORIDE
     Route: 065
  33. KENALOG [Concomitant]
     Active Substance: TRIAMCINOLONE ACETONIDE
     Route: 065
  34. ENTRESTO [Concomitant]
     Active Substance: SACUBITRIL\VALSARTAN
     Indication: Cardiac failure
     Route: 065

REACTIONS (38)
  - Deafness permanent [Not Recovered/Not Resolved]
  - Endocrine ophthalmopathy [Unknown]
  - Graves^ disease [Unknown]
  - Diabetes mellitus [Unknown]
  - Exophthalmos [Recovering/Resolving]
  - Pain [Unknown]
  - Emotional distress [Unknown]
  - Anxiety [Unknown]
  - Impaired quality of life [Unknown]
  - Discomfort [Unknown]
  - Product use complaint [Unknown]
  - Ocular discomfort [Recovering/Resolving]
  - Diplopia [Not Recovered/Not Resolved]
  - Eye pain [Not Recovered/Not Resolved]
  - Dry eye [Recovering/Resolving]
  - Foreign body sensation in eyes [Unknown]
  - Blood thyroid stimulating hormone increased [Unknown]
  - Eyelid oedema [Unknown]
  - Photosensitivity reaction [Unknown]
  - Swelling of eyelid [Unknown]
  - Strabismus [Unknown]
  - Vision blurred [Unknown]
  - Ocular hyperaemia [Recovering/Resolving]
  - Dizziness [Unknown]
  - Blood thyroid stimulating hormone decreased [Unknown]
  - Insomnia [Unknown]
  - Inappropriate schedule of product administration [Unknown]
  - Arthralgia [Recovered/Resolved]
  - Eye swelling [Recovered/Resolved]
  - Muscular weakness [Unknown]
  - Tinnitus [Not Recovered/Not Resolved]
  - Fatigue [Recovered/Resolved]
  - Muscle spasms [Not Recovered/Not Resolved]
  - Alopecia [Recovering/Resolving]
  - Diarrhoea [Not Recovered/Not Resolved]
  - Nausea [Unknown]
  - Eyelid ptosis [Unknown]
  - Lethargy [Unknown]

NARRATIVE: CASE EVENT DATE: 20221109
